FAERS Safety Report 4811247-4 (Version None)
Quarter: 2005Q4

REPORT INFORMATION
  Report Type: 
  Country: None (occurrence: None)
  Receive Date: 20051025
  Receipt Date: 20051011
  Transmission Date: 20060501
  Serious: Yes (Death)
  Sender: FDA-Public Use
  Company Number: 218511

PATIENT
  Age: 41 Year
  Sex: Female

DRUGS (12)
  1. RITUXAN [Suspect]
     Indication: NON-HODGKIN'S LYMPHOMA
     Dosage: 600 MG, INTRAVENOUS
     Route: 042
     Dates: start: 20020123, end: 20020215
  2. PARAPLATIN [Suspect]
     Indication: NON-HODGKIN'S LYMPHOMA
     Dosage: 500 MG,
  3. CYCLOPHOSPHAMIDE [Concomitant]
  4. ADRIAMYCIN PFS [Concomitant]
  5. ONCOVIN [Concomitant]
  6. PREDISOLONE [Concomitant]
  7. NATULAN (PROCARBAZINE HYDROCHLORIDE) [Concomitant]
  8. BLEOMYCIN [Concomitant]
  9. ETOPOSIDE [Concomitant]
  10. MEFENAMIC ACID [Concomitant]
  11. CHLORPHENIRAMINE MALEATE [Concomitant]
  12. CARBOPLATIN [Concomitant]

REACTIONS (15)
  - BLOOD BILIRUBIN DECREASED [None]
  - BRAIN HERNIATION [None]
  - BRAIN OEDEMA [None]
  - COMPLICATIONS OF TRANSPLANTED LIVER [None]
  - CONVULSION [None]
  - DRUG INEFFECTIVE [None]
  - ENCEPHALOPATHY [None]
  - GASTROINTESTINAL HAEMORRHAGE [None]
  - HEPATITIS FULMINANT [None]
  - LIVER DISORDER [None]
  - LIVER TRANSPLANT [None]
  - PNEUMONIA FUNGAL [None]
  - RENAL FAILURE [None]
  - STEM CELL TRANSPLANT [None]
  - WHITE BLOOD CELL COUNT DECREASED [None]
